FAERS Safety Report 9096480 (Version 1)
Quarter: 2013Q1

REPORT INFORMATION
  Report Type: Spontaneous
  Country: CH (occurrence: CH)
  Receive Date: 20130211
  Receipt Date: 20130211
  Transmission Date: 20140127
  Serious: Yes (Hospitalization, Other)
  Sender: FDA-Public Use
  Company Number: CH-009507513-1302CHE002490

PATIENT
  Sex: Male
  Weight: 67 kg

DRUGS (3)
  1. AMINOHIPPURATE SODIUM [Suspect]
     Indication: DIAGNOSTIC PROCEDURE
     Dosage: 1.33 ML, ONCE
     Route: 040
     Dates: start: 20130116, end: 20130116
  2. INULIN [Suspect]
     Indication: DIAGNOSTIC PROCEDURE
     Dosage: 13.38 ML, ONCE
     Route: 040
     Dates: start: 20130116, end: 20130116
  3. INUTEST [Suspect]
     Indication: DIAGNOSTIC PROCEDURE
     Dosage: 13.38 ML, ONCE
     Route: 040
     Dates: start: 20130116, end: 20130116

REACTIONS (7)
  - Type I hypersensitivity [Recovered/Resolved]
  - Hypotension [Recovered/Resolved]
  - Tachycardia [Recovered/Resolved]
  - Rash [Recovered/Resolved]
  - Oedema mouth [Recovered/Resolved]
  - Diarrhoea [Recovered/Resolved]
  - Vomiting [Recovered/Resolved]
